FAERS Safety Report 4596853-7 (Version None)
Quarter: 2005Q1

REPORT INFORMATION
  Report Type: 
  Country: None (occurrence: None)
  Receive Date: 20050225
  Receipt Date: 20050217
  Transmission Date: 20050727
  Serious: No
  Sender: FDA-Public Use
  Company Number: 2005UW01348

PATIENT
  Age: 49 Year
  Sex: Male
  Weight: 66.2252 kg

DRUGS (1)
  1. CRESTOR [Suspect]
     Dosage: 10 MG PO
     Route: 048

REACTIONS (10)
  - BACK PAIN [None]
  - CHEST PAIN [None]
  - FLANK PAIN [None]
  - HEADACHE [None]
  - HEPATIC PAIN [None]
  - INSOMNIA [None]
  - MYALGIA [None]
  - NEURALGIA [None]
  - PAIN IN EXTREMITY [None]
  - PARAESTHESIA [None]
